FAERS Safety Report 6273999-9 (Version None)
Quarter: 2009Q3

REPORT INFORMATION
  Report Type: 
  Country: None (occurrence: None)
  Receive Date: 20090716
  Receipt Date: 20090707
  Transmission Date: 20100115
  Serious: Yes (Life-Threatening, Hospitalization)
  Sender: FDA-Public Use
  Company Number: WAES 0907USA00898

PATIENT
  Age: 35 Year
  Sex: Female

DRUGS (7)
  1. ISENTRESS [Suspect]
     Indication: HIV INFECTION
     Dosage: 400 MG/BID PO
     Route: 048
     Dates: start: 20090621, end: 20090707
  2. TRUVADA [Suspect]
     Indication: HIV INFECTION
     Dosage: 1 TAB/DAILY PO
     Route: 048
     Dates: start: 20090621, end: 20090707
  3. PLACEBO (UNSPECIFIED) [Suspect]
     Dates: start: 20090621, end: 20090707
  4. BRICAREX [Concomitant]
  5. LEVODAY [Concomitant]
  6. TONOFERON [Concomitant]
  7. VITANEURIN (FURSULTIAMINE (+) HYDROXOCOB) [Concomitant]

REACTIONS (3)
  - HYPOXIA [None]
  - PLEURAL EFFUSION [None]
  - TUBERCULOSIS [None]
